FAERS Safety Report 6979459-1 (Version None)
Quarter: 2010Q3

REPORT INFORMATION
  Report Type: 
  Country: None (occurrence: None)
  Receive Date: 20100913
  Receipt Date: 20100909
  Transmission Date: 20110219
  Serious: Yes (Hospitalization)
  Sender: FDA-Public Use
  Company Number: FR-WYE-G06644010

PATIENT
  Sex: Female

DRUGS (4)
  1. LEVONORGESTREL AND ETHINYL ESTRADIOL [Suspect]
     Route: 048
     Dates: end: 20100801
  2. ARTANE [Suspect]
     Dosage: UNKNOWN
     Route: 048
  3. DILTIAZEM [Suspect]
     Dosage: UNKNOWN
     Route: 048
  4. NOZINAN [Suspect]

REACTIONS (1)
  - INTRACRANIAL VENOUS SINUS THROMBOSIS [None]
